FAERS Safety Report 17942536 (Version 1)
Quarter: 2020Q2

REPORT INFORMATION
  Report Type: Spontaneous
  Country: FR (occurrence: FR)
  Receive Date: 20200625
  Receipt Date: 20200625
  Transmission Date: 20200714
  Serious: Yes (Hospitalization, Other)
  Sender: FDA-Public Use
  Company Number: FR-ADVANZ PHARMA-202005006499

PATIENT

DRUGS (1)
  1. HYDROXYCHLOROQUINE SULFATE (AUTHORIZED GENERIC),PLAQUENIL [Suspect]
     Active Substance: HYDROXYCHLOROQUINE SULFATE
     Indication: RHEUMATOID ARTHRITIS
     Dosage: UNK
     Route: 065

REACTIONS (6)
  - Visual impairment [Unknown]
  - Myocardial infarction [Unknown]
  - Cardiac failure [Unknown]
  - Arrhythmia [Unknown]
  - Toxicity to various agents [Unknown]
  - Cerebellar tumour [Unknown]

NARRATIVE: CASE EVENT DATE: 1998
